FAERS Safety Report 12262211 (Version 1)
Quarter: 2016Q2

REPORT INFORMATION
  Report Type: Spontaneous
  Country: US (occurrence: US)
  Receive Date: 20160413
  Receipt Date: 20160413
  Transmission Date: 20160815
  Serious: No
  Sender: FDA-Public Use
  Company Number: US-HORIZON-PEN-0176-2016

PATIENT
  Age: 51 Year
  Sex: Female

DRUGS (4)
  1. DUEXIS [Concomitant]
     Active Substance: FAMOTIDINE\IBUPROFEN
  2. NORCO [Concomitant]
     Active Substance: ACETAMINOPHEN\HYDROCODONE BITARTRATE
  3. NEURONTIN [Concomitant]
     Active Substance: GABAPENTIN
  4. PENNSAID [Suspect]
     Active Substance: DICLOFENAC SODIUM
     Indication: ARTHRALGIA
     Dosage: 1 FOIL PACKET DAILY
     Dates: start: 201603

REACTIONS (2)
  - Therapy cessation [Not Recovered/Not Resolved]
  - Off label use [Not Recovered/Not Resolved]

NARRATIVE: CASE EVENT DATE: 20160406
